FAERS Safety Report 5116726-0 (Version None)
Quarter: 2006Q3

REPORT INFORMATION
  Report Type: 
  Country: None (occurrence: None)
  Receive Date: 20060928
  Receipt Date: 20060921
  Transmission Date: 20061208
  Serious: Yes (Other)
  Sender: FDA-Public Use
  Company Number: US-ROCHE-464543

PATIENT
  Age: 60 Year
  Sex: Male

DRUGS (2)
  1. PEGASYS [Suspect]
     Dosage: STRENGTH REPORTED AS 180 MCG/0.5 ML
     Route: 058
     Dates: start: 20060315
  2. COPEGUS [Suspect]
     Route: 048
     Dates: start: 20060315

REACTIONS (4)
  - FATIGUE [None]
  - FEELING ABNORMAL [None]
  - OCULAR RETROBULBAR HAEMORRHAGE [None]
  - WEIGHT DECREASED [None]
